FAERS Safety Report 4334151-7 (Version None)
Quarter: 2004Q2

REPORT INFORMATION
  Report Type: 
  Country: None (occurrence: None)
  Receive Date: 20040405
  Receipt Date: 20040326
  Transmission Date: 20050107
  Serious: Yes (Hospitalization, Other)
  Sender: FDA-Public Use
  Company Number: 22104

PATIENT
  Age: 87 Year
  Sex: Female

DRUGS (1)
  1. ALDARA [Suspect]
     Indication: MALIGNANT MELANOMA IN SITU
     Dosage: 3 IN 1 WEEK (S), TOPICAL  APPROXIMATELY 26 WEEKS
     Route: 061

REACTIONS (3)
  - CONDITION AGGRAVATED [None]
  - INFLAMMATION [None]
  - MALIGNANT MELANOMA [None]
